FAERS Safety Report 15385960 (Version 1)
Quarter: 2018Q3

REPORT INFORMATION
  Report Type: Spontaneous
  Country: US (occurrence: US)
  Receive Date: 20180914
  Receipt Date: 20180914
  Transmission Date: 20181010
  Serious: No
  Sender: FDA-Public Use
  Company Number: US-GLAXOSMITHKLINE-US2018163076

PATIENT
  Sex: Male

DRUGS (1)
  1. CARVEDILOL TABLET [Suspect]
     Active Substance: CARVEDILOL
     Route: 048
     Dates: start: 20180808

REACTIONS (2)
  - Pollakiuria [Not Recovered/Not Resolved]
  - Fatigue [Unknown]
